FAERS Safety Report 10660299 (Version 1)
Quarter: 2014Q4

REPORT INFORMATION
  Report Type: Spontaneous
  Country: US (occurrence: US)
  Receive Date: 20141217
  Receipt Date: 20141217
  Transmission Date: 20150529
  Serious: No
  Sender: FDA-Public Use
  Company Number: US-GLAXOSMITHKLINE-A1083253A

PATIENT

DRUGS (1)
  1. VOTRIENT [Suspect]
     Active Substance: PAZOPANIB HYDROCHLORIDE
     Indication: RENAL CELL CARCINOMA
     Dosage: 800 MG
     Route: 065
     Dates: start: 20140708

REACTIONS (9)
  - Stomatitis [Unknown]
  - Flatulence [Unknown]
  - Headache [Unknown]
  - Abdominal distension [Unknown]
  - Gingival bleeding [Unknown]
  - Disturbance in attention [Unknown]
  - Dysgeusia [Unknown]
  - Dry mouth [Unknown]
  - Diarrhoea [Unknown]
